FAERS Safety Report 13691695 (Version 6)
Quarter: 2019Q2

REPORT INFORMATION
  Report Type: Spontaneous
  Country: US (occurrence: US)
  Receive Date: 20170626
  Receipt Date: 20190531
  Transmission Date: 20190711
  Serious: Yes (Other)
  Sender: FDA-Public Use
  Company Number: US-ACTELION-A-NJ2017-155767

PATIENT
  Sex: Female
  Weight: 71.2 kg

DRUGS (4)
  1. COUMADIN [Concomitant]
     Active Substance: WARFARIN SODIUM
  2. ADCIRCA [Concomitant]
     Active Substance: TADALAFIL
  3. OPSUMIT [Suspect]
     Active Substance: MACITENTAN
     Indication: PULMONARY ARTERIAL HYPERTENSION
     Dosage: 10 MG, QD
     Route: 048
  4. REMODULIN [Suspect]
     Active Substance: TREPROSTINIL
     Indication: PRODUCT USED FOR UNKNOWN INDICATION
     Route: 058

REACTIONS (20)
  - Erythema [Unknown]
  - Condition aggravated [Unknown]
  - Vomiting [Recovering/Resolving]
  - Device infusion issue [Recovered/Resolved]
  - Headache [Unknown]
  - Catheter site haemorrhage [Unknown]
  - Influenza [Unknown]
  - Catheter site warmth [Unknown]
  - Device dislocation [Unknown]
  - Cough [Unknown]
  - International normalised ratio increased [Unknown]
  - Product dose omission [Unknown]
  - Skin irritation [Unknown]
  - Rash [Unknown]
  - Catheter site pruritus [Unknown]
  - Pyrexia [Unknown]
  - Infusion site pain [Not Recovered/Not Resolved]
  - Catheter site irritation [Unknown]
  - Catheter site swelling [Unknown]
  - Nausea [Unknown]
